FAERS Safety Report 7283690-8 (Version None)
Quarter: 2011Q1

REPORT INFORMATION
  Report Type: 
  Country: None (occurrence: None)
  Receive Date: 20110204
  Receipt Date: 20110204
  Transmission Date: 20110831
  Serious: No
  Sender: FDA-Public Use
  Company Number: None

PATIENT
  Sex: Male
  Weight: 109.9973 kg

DRUGS (1)
  1. AMOCLAN [Suspect]
     Indication: PNEUMONIA
     Dosage: 360MG BID PO
     Route: 048
     Dates: start: 20110118, end: 20110121

REACTIONS (2)
  - JAUNDICE [None]
  - ASPARTATE AMINOTRANSFERASE INCREASED [None]
